FAERS Safety Report 5924044-3 (Version None)
Quarter: 2008Q4

REPORT INFORMATION
  Report Type: 
  Country: None (occurrence: None)
  Receive Date: 20081020
  Receipt Date: 20081015
  Transmission Date: 20090506
  Serious: Yes (Other)
  Sender: FDA-Public Use
  Company Number: PHEH2008US06874

PATIENT
  Sex: Female
  Weight: 131.97 kg

DRUGS (11)
  1. RECLAST [Suspect]
     Indication: OSTEOPOROSIS
     Dosage: 5 MG, ONCE YEARLY
     Dates: start: 20080730
  2. VITAMIN B-12 [Concomitant]
  3. SYNTHROID [Concomitant]
     Dosage: 175 UG, QD
     Route: 048
  4. VITAMIN D [Concomitant]
     Dosage: 50000 U, QW
  5. TOPROL-XL [Concomitant]
     Dosage: 50 MG, QD
     Route: 048
  6. NEXIUM [Concomitant]
     Dosage: 40 MG, QD
     Route: 048
  7. ELAVIL [Concomitant]
     Dosage: 25 MG, QHS
  8. STRESSTABS [Concomitant]
     Dosage: UNK
  9. CLOBESOL [Concomitant]
     Dosage: UNK
  10. CALCIUM [Concomitant]
     Dosage: UNK
  11. ACYCLOVIR [Concomitant]
     Dosage: 800 MG, EVERY 8 TO 10 HOURS

REACTIONS (5)
  - EYE INFLAMMATION [None]
  - EYE PAIN [None]
  - FACIAL PALSY [None]
  - HEADACHE [None]
  - PYREXIA [None]
